FAERS Safety Report 18329247 (Version 1)
Quarter: 2020Q3

REPORT INFORMATION
  Report Type: Spontaneous
  Country: US (occurrence: US)
  Receive Date: 20200929
  Receipt Date: 20200929
  Transmission Date: 20201103
  Serious: No
  Sender: FDA-Public Use
  Company Number: None

PATIENT
  Age: 73 Year
  Sex: Male

DRUGS (11)
  1. NEURONTIN [Concomitant]
     Active Substance: GABAPENTIN
  2. TYLENOL [Concomitant]
     Active Substance: ACETAMINOPHEN
  3. COZAAR [Concomitant]
     Active Substance: LOSARTAN POTASSIUM
  4. TOPROL XL [Concomitant]
     Active Substance: METOPROLOL SUCCINATE
  5. ACYCLOVIR. [Concomitant]
     Active Substance: ACYCLOVIR
  6. ALLOPURINOL. [Concomitant]
     Active Substance: ALLOPURINOL
  7. ASPIRIN. [Concomitant]
     Active Substance: ASPIRIN
  8. ERGOCALCIFEROL. [Concomitant]
     Active Substance: ERGOCALCIFEROL
  9. MULTIPLE VITAMIN [Concomitant]
     Active Substance: VITAMINS
  10. NINLARO [Suspect]
     Active Substance: IXAZOMIB CITRATE
     Indication: PLASMA CELL MYELOMA
     Dosage: 21ON7OFF
     Route: 048
     Dates: start: 201903
  11. SULINDAC. [Concomitant]
     Active Substance: SULINDAC

REACTIONS (2)
  - Throat tightness [None]
  - Swelling face [None]

NARRATIVE: CASE EVENT DATE: 20200928
